FAERS Safety Report 4455703-X (Version None)
Quarter: 2004Q3

REPORT INFORMATION
  Report Type: 
  Country: None (occurrence: None)
  Receive Date: 20040917
  Receipt Date: 20040908
  Transmission Date: 20050211
  Serious: No
  Sender: FDA-Public Use
  Company Number: 2004228470GB

PATIENT
  Age: 51 Year
  Sex: Male
  Weight: 68 kg

DRUGS (5)
  1. CAVERJECT [Suspect]
     Indication: ERECTILE DYSFUNCTION
     Dosage: 20 UG, PRN, INT CORP CAVERN
     Dates: start: 19960101
  2. CODEINE PHOSPHATE [Concomitant]
  3. DICLOFENAC [Concomitant]
  4. CLONAZEPAM [Concomitant]
  5. LOFEPRAMINE (LOFEPRAMINE) [Concomitant]

REACTIONS (2)
  - CONDITION AGGRAVATED [None]
  - RETINOPATHY [None]
